FAERS Safety Report 4622772-3 (Version None)
Quarter: 2005Q1

REPORT INFORMATION
  Report Type: 
  Country: None (occurrence: None)
  Receive Date: 20050330
  Receipt Date: 20050321
  Transmission Date: 20050727
  Serious: Yes (Hospitalization)
  Sender: FDA-Public Use
  Company Number: GB-BRISTOL-MYERS SQUIBB COMPANY-12905360

PATIENT
  Sex: Female
  Weight: 86 kg

DRUGS (3)
  1. CISPLATIN [Suspect]
     Indication: ENDOMETRIAL CANCER
     Dosage: TX START 20-DEC-2004; TX DELAYED
     Dates: start: 20050311, end: 20050311
  2. DOXORUBICIN HCL [Suspect]
     Indication: ENDOMETRIAL CANCER
     Dosage: TX START 20-DEC-2004; TX DELAYED
     Dates: start: 20050311, end: 20050311
  3. PACLITAXEL [Suspect]
     Indication: ENDOMETRIAL CANCER
     Dosage: TX START 20-DEC-2004; TX DELAYED
     Dates: start: 20050311, end: 20050311

REACTIONS (3)
  - DIARRHOEA [None]
  - HYPOCALCAEMIA [None]
  - VOMITING [None]
